FAERS Safety Report 22394205 (Version 1)
Quarter: 2023Q2

REPORT INFORMATION
  Report Type: Spontaneous
  Country: US (occurrence: US)
  Receive Date: 20230601
  Receipt Date: 20230601
  Transmission Date: 20230721
  Serious: No
  Sender: FDA-Public Use
  Company Number: US-APIL-2312779US

PATIENT
  Age: 34 Year
  Sex: Female

DRUGS (1)
  1. TAZAROTENE [Suspect]
     Active Substance: TAZAROTENE
     Indication: Product used for unknown indication
     Dosage: UNK, QD (AT BEDTIME)

REACTIONS (2)
  - Application site hypoaesthesia [Recovered/Resolved]
  - Application site pruritus [Recovered/Resolved]
